FAERS Safety Report 13546927 (Version 4)
Quarter: 2017Q3

REPORT INFORMATION
  Report Type: Spontaneous
  Country: TR (occurrence: TR)
  Receive Date: 20170515
  Receipt Date: 20170724
  Transmission Date: 20171127
  Serious: Yes (Life-Threatening, Hospitalization, Disabling)
  Sender: FDA-Public Use
  Company Number: TR-PFIZER INC-2017206855

PATIENT
  Age: 44 Year
  Sex: Male
  Weight: 62 kg

DRUGS (6)
  1. MAGNEZINC [Concomitant]
     Dosage: 30 MG, UNK
  2. BENEDAY [Concomitant]
     Dosage: 300 MG, UNK
  3. NEURONTIN [Suspect]
     Active Substance: GABAPENTIN
     Indication: NERVE INJURY
  4. NEURONTIN [Suspect]
     Active Substance: GABAPENTIN
     Indication: OEDEMA PERIPHERAL
     Dosage: 600 MG, 2X/DAY (IN THE MORNING AND IN THE EVENING)
     Route: 048
     Dates: start: 20170329
  5. NEURONTIN [Suspect]
     Active Substance: GABAPENTIN
     Indication: PATHOLOGICAL FRACTURE
  6. RANEKS [Concomitant]
     Dosage: 20 MG, UNK

REACTIONS (5)
  - Product use in unapproved indication [Unknown]
  - Chest pain [Not Recovered/Not Resolved]
  - Diarrhoea [Recovered/Resolved]
  - Oropharyngeal pain [Not Recovered/Not Resolved]
  - Asthenia [Not Recovered/Not Resolved]

NARRATIVE: CASE EVENT DATE: 20170329
